FAERS Safety Report 11313477 (Version 2)
Quarter: 2015Q4

REPORT INFORMATION
  Report Type: Spontaneous
  Country: US (occurrence: US)
  Receive Date: 20150727
  Receipt Date: 20151008
  Transmission Date: 20160304
  Serious: No
  Sender: FDA-Public Use
  Company Number: US-009507513-1507USA008971

PATIENT
  Sex: Female

DRUGS (1)
  1. ASMANEX [Suspect]
     Active Substance: MOMETASONE FUROATE
     Dosage: 2 PUFFS BY MOUTH DAILY
     Route: 055
     Dates: start: 20130905

REACTIONS (3)
  - Product quality issue [Unknown]
  - Drug dose omission [Recovered/Resolved]
  - No adverse event [Unknown]
